FAERS Safety Report 6538284-6 (Version None)
Quarter: 2010Q1

REPORT INFORMATION
  Report Type: 
  Country: None (occurrence: None)
  Receive Date: 20100112
  Receipt Date: 20100112
  Transmission Date: 20100710
  Serious: Yes (Hospitalization)
  Sender: FDA-Public Use
  Company Number: None

PATIENT
  Age: 61 Year
  Sex: Female
  Weight: 67.1324 kg

DRUGS (1)
  1. ACTONEL [Suspect]
     Indication: OSTEOPENIA
     Dosage: ONE PILL PER MONTH
     Dates: start: 20080201, end: 20100110

REACTIONS (10)
  - CHEST PAIN [None]
  - DRY EYE [None]
  - HIATUS HERNIA [None]
  - IMPAIRED DRIVING ABILITY [None]
  - LYMPHADENOPATHY [None]
  - MUSCLE DISORDER [None]
  - PERIARTHRITIS [None]
  - PHOTOPHOBIA [None]
  - READING DISORDER [None]
  - URTICARIA [None]
